FAERS Safety Report 7809016-6 (Version None)
Quarter: 2011Q4

REPORT INFORMATION
  Report Type: 
  Country: None (occurrence: None)
  Receive Date: 20111012
  Receipt Date: 20111012
  Transmission Date: 20120403
  Serious: No
  Sender: FDA-Public Use
  Company Number: None

PATIENT
  Sex: Male
  Weight: 68.038 kg

DRUGS (1)
  1. NAFCILLIN [Suspect]
     Indication: OSTEOMYELITIS
     Dosage: 2 GM
     Route: 042
     Dates: start: 20110906, end: 20110930

REACTIONS (1)
  - WHITE BLOOD CELL COUNT DECREASED [None]
